FAERS Safety Report 7414904-9 (Version None)
Quarter: 2011Q2

REPORT INFORMATION
  Report Type: 
  Country: None (occurrence: None)
  Receive Date: 20110414
  Receipt Date: 20110411
  Transmission Date: 20111010
  Serious: Yes (Other)
  Sender: FDA-Public Use
  Company Number: US-GENZYME-FLUD-1001058

PATIENT

DRUGS (14)
  1. THYMOGLOBULIN [Suspect]
     Indication: MYELODYSPLASTIC SYNDROME
     Dosage: UNK
     Route: 065
  2. BUSULFAN [Suspect]
     Indication: STEM CELL TRANSPLANT
  3. DECITABINE [Suspect]
     Dosage: 20 MG/M2, QDX5
     Route: 042
  4. DECITABINE [Suspect]
     Dosage: 20 MG/M2, QDX5
     Route: 042
  5. DECITABINE [Suspect]
     Dosage: 20 MG/M2, QDX5
     Route: 042
  6. METHOTREXATE [Concomitant]
     Indication: PROPHYLAXIS AGAINST GRAFT VERSUS HOST DISEASE
     Dosage: UNK
     Route: 065
  7. FLUDARA [Suspect]
     Indication: MYELODYSPLASTIC SYNDROME
     Dosage: 40 MG/M2, QDX4
     Route: 065
  8. TACROLIMUS [Concomitant]
     Indication: PROPHYLAXIS AGAINST GRAFT VERSUS HOST DISEASE
     Dosage: UNK
     Route: 065
  9. FLUDARA [Suspect]
     Indication: STEM CELL TRANSPLANT
  10. BUSULFAN [Suspect]
     Indication: MYELODYSPLASTIC SYNDROME
     Dosage: 130 MG/M2, QDX2
     Route: 042
  11. DECITABINE [Suspect]
     Indication: MYELODYSPLASTIC SYNDROME
     Dosage: 20 MG/M2, QDX5
     Route: 042
  12. DECITABINE [Suspect]
     Dosage: 20 MG/M2, QDX5
     Route: 042
  13. DECITABINE [Suspect]
     Dosage: 20 MG/M2, QDX5
     Route: 042
  14. THYMOGLOBULIN [Suspect]
     Indication: STEM CELL TRANSPLANT

REACTIONS (5)
  - ACUTE GRAFT VERSUS HOST DISEASE IN SKIN [None]
  - VOMITING [None]
  - NAUSEA [None]
  - ACUTE GRAFT VERSUS HOST DISEASE [None]
  - MUCOSAL INFLAMMATION [None]
